FAERS Safety Report 7355003 (Version 2)
Quarter: 2013Q3

REPORT INFORMATION
  Report Type: Spontaneous
  Country: US (occurrence: None)
  Receive Date: 20100329
  Receipt Date: 20130711
  Transmission Date: 20140515
  Serious: Yes (Other)
  Sender: FDA-Public Use
  Company Number: AUR-APL-2010-00856

PATIENT
  Age: 53 Year
  Sex: Male
  Weight: 104.31 kg

DRUGS (27)
  1. FINASTERIDE [Suspect]
     Indication: OEDEMA
     Dosage: 5MG, DAILY, ORAL
     Route: 048
     Dates: start: 200808
  2. METFORMIN [Suspect]
     Indication: DIABETES MELLITUS
     Dosage: ORAL
     Route: 048
     Dates: end: 2009
  3. SIMVASTATIN [Suspect]
     Indication: BLOOD CHOLESTEROL INCREASED
     Dosage: 40MG - DAILY - ORAL
     Route: 048
  4. SIMVASTATIN [Suspect]
     Indication: ALANINE AMINOTRANSFERASE INCREASED
     Dosage: 40MG - DAILY - ORAL
     Route: 048
  5. ALLOPURINOL [Suspect]
     Indication: HEPATIC ENZYME INCREASED
     Dosage: 300MG 0.5-1 TIMES DAILY (0.5-1 TIMES DAILY),ORAL
     Route: 048
     Dates: start: 200402
  6. ACTOS [Suspect]
     Indication: DIABETES MELLITUS
     Dosage: 7.5-15MG - DAILY - ORAL
     Route: 048
     Dates: start: 20090108, end: 200901
  7. ALBUTEROL SULFATE [Suspect]
     Indication: RESPIRATORY TRACT INFECTION VIRAL
     Dosage: 4MG - TID - ORAL
     Route: 048
     Dates: start: 200703
  8. ALBUTEROL SULFATE [Suspect]
     Indication: RHINITIS
     Dosage: 4MG - TID - ORAL
     Route: 048
     Dates: start: 200703
  9. ALBUTEROL SULFATE [Suspect]
     Indication: COUGH
     Dosage: 4MG - TID - ORAL
     Route: 048
     Dates: start: 200703
  10. COLCHICINE [Suspect]
     Indication: ALANINE AMINOTRANSFERASE INCREASED
     Dosage: 0.6 MG 1-2 TABLETS A DAY (1-2 TABLETS A DAY),ORAL
     Route: 048
     Dates: start: 200203
  11. IPRATROPIUM BROMIDE [Suspect]
     Dates: start: 200312, end: 200611
  12. LORATADINE [Suspect]
     Dosage: 10MG - DAILY - ORAL
     Route: 048
     Dates: start: 200811
  13. NASAREL [Suspect]
     Indication: OEDEMA PERIPHERAL
     Dates: start: 200312, end: 200611
  14. OMEPRAZOLE [Suspect]
     Indication: OEDEMA PERIPHERAL
     Dosage: 20MG - BID - ORAL
     Route: 048
     Dates: start: 200407
  15. OMEPRAZOLE [Suspect]
     Indication: ALANINE AMINOTRANSFERASE INCREASED
     Dosage: 20MG - BID - ORAL
     Route: 048
     Dates: start: 200407
  16. OXYCODONE [Suspect]
     Dosage: 5 MG (4-6 AS NEEDED AT BEDTIME)
     Dates: start: 201002
  17. PENTOXIFYLLINE [Suspect]
     Indication: OEDEMA
     Dosage: 400 MG (TWICE A DAY(ONCE AT AM ONCE AT NOON)),ORAL
     Route: 048
     Dates: start: 200205
  18. PENTOXIFYLLINE [Suspect]
     Indication: INFLUENZA
     Dosage: 400 MG (TWICE A DAY(ONCE AT AM ONCE AT NOON)),ORAL
     Route: 048
     Dates: start: 200205
  19. PENTOXIFYLLINE [Suspect]
     Indication: HEPATIC ENZYME INCREASED
     Dosage: 400 MG (TWICE A DAY(ONCE AT AM ONCE AT NOON)),ORAL
     Route: 048
     Dates: start: 200205
  20. RANITIDINE [Suspect]
     Indication: MYALGIA
     Dosage: 300MG - TID - ORAL
     Route: 048
     Dates: start: 200309
  21. RANITIDINE [Suspect]
     Indication: LIVER DISORDER
     Dosage: 300MG - TID - ORAL
     Route: 048
     Dates: start: 200309
  22. LASIX [Concomitant]
  23. METFORMIN XR (GLUCOPHAGE XR) [Concomitant]
  24. GLIPIZIDE [Suspect]
     Indication: DIABETES MELLITUS
     Route: 048
  25. GLIPIZIDE [Suspect]
     Indication: MUSCLE SPASMS
     Route: 048
  26. GLIPIZIDE [Suspect]
     Indication: OEDEMA
     Route: 048
  27. GLUCOPHAGE [Suspect]
     Indication: PRODUCT USED FOR UNKNOWN INDICATION
     Dosage: 1 TABLET (FOUR TIMES A DAY),ORAL
     Route: 048
     Dates: start: 200902

REACTIONS (8)
  - Nasopharyngitis [None]
  - Sinus disorder [None]
  - Gingival disorder [None]
  - Joint swelling [None]
  - Blood glucose increased [None]
  - Treatment noncompliance [None]
  - Drug effect decreased [None]
  - Respiratory tract infection viral [None]
